FAERS Safety Report 15005857 (Version 7)
Quarter: 2018Q3

REPORT INFORMATION
  Report Type: Report from Study
  Country: BE (occurrence: BE)
  Receive Date: 20180613
  Receipt Date: 20180827
  Transmission Date: 20181010
  Serious: Yes (Other)
  Sender: FDA-Public Use
  Company Number: BE-BAYER-2018-110409

PATIENT
  Age: 58 Year
  Sex: Male

DRUGS (16)
  1. BILASTINE [Concomitant]
     Active Substance: BILASTINE
     Dosage: 20 MG
  2. VALTRAN [Concomitant]
     Active Substance: NALOXONE HYDROCHLORIDE\TILIDINE HYDROCHLORIDE
     Indication: PAIN
     Dosage: UNK, PRN
     Dates: start: 201805
  3. PANTOPRAZOLE SODIUM. [Concomitant]
     Active Substance: PANTOPRAZOLE SODIUM
     Dosage: 40 MG
  4. LORMETAZEPAM [Concomitant]
     Active Substance: LORMETAZEPAM
     Dosage: 2 MG
  5. COLOFIBER [Concomitant]
     Dosage: UNK
     Dates: start: 20180711
  6. LITICAN [Concomitant]
     Active Substance: ALIZAPRIDE HYDROCHLORIDE
     Indication: NAUSEA
     Dosage: 50 MG, PRN
  7. NEXAVAR [Suspect]
     Active Substance: SORAFENIB
     Indication: HEPATOCELLULAR CARCINOMA
     Dosage: DAILY DOSE 400 MG
     Dates: start: 20180614, end: 20180625
  8. DUROGESIC [Concomitant]
     Active Substance: FENTANYL
     Indication: PAIN
     Dosage: 37 MCG
     Dates: start: 201805
  9. NEXAVAR [Suspect]
     Active Substance: SORAFENIB
     Indication: HEPATOCELLULAR CARCINOMA
     Dosage: DAILY DOSE 800 MG
     Route: 048
     Dates: start: 20180601, end: 20180612
  10. NEXAVAR [Suspect]
     Active Substance: SORAFENIB
     Indication: HEPATOCELLULAR CARCINOMA
     Dosage: DAILY DOSE 400 MG
     Dates: start: 20180628, end: 20180726
  11. GLYCOPYRROLATE. [Concomitant]
     Active Substance: GLYCOPYRROLATE
     Dosage: 44 Y
  12. DAKTARIN [Concomitant]
     Active Substance: MICONAZOLE NITRATE
     Dosage: UNK
     Dates: start: 20180612
  13. MIFLONIDE [Concomitant]
     Active Substance: BUDESONIDE
     Dosage: 2X200
  14. ALDACTONE [Concomitant]
     Active Substance: SPIRONOLACTONE
     Dosage: ;ALTERNATELY 25 MG AND 50 MG
  15. FORADIL [Concomitant]
     Active Substance: FORMOTEROL FUMARATE
     Dosage: 12
  16. DUOVENT [Concomitant]
     Active Substance: FENOTEROL HYDROBROMIDE
     Dosage: UNK, PRN

REACTIONS (24)
  - Constipation [None]
  - Sensation of foreign body [None]
  - Decreased appetite [Not Recovered/Not Resolved]
  - Constipation [None]
  - Skin exfoliation [Recovering/Resolving]
  - Chills [None]
  - Back pain [Recovering/Resolving]
  - Fatigue [Recovering/Resolving]
  - Genital discomfort [Recovering/Resolving]
  - Metastases to bone [None]
  - Hyperhidrosis [None]
  - Dry mouth [Recovering/Resolving]
  - Penile pain [Recovering/Resolving]
  - Back pain [None]
  - Haematoma [None]
  - Weight decreased [None]
  - Hepatocellular carcinoma [Unknown]
  - Skin reaction [Recovering/Resolving]
  - Genital rash [Recovering/Resolving]
  - Pruritus [Recovering/Resolving]
  - Oedema peripheral [Recovered/Resolved]
  - Nipple pain [None]
  - Penile erythema [Recovering/Resolving]
  - Rash erythematous [Recovered/Resolved]

NARRATIVE: CASE EVENT DATE: 2018
